FAERS Safety Report 11743882 (Version 1)
Quarter: 2015Q4

REPORT INFORMATION
  Report Type: Spontaneous
  Country: US (occurrence: US)
  Receive Date: 20151116
  Receipt Date: 20151116
  Transmission Date: 20160304
  Serious: No
  Sender: FDA-Public Use
  Company Number: US-GALDERMA-US14004544

PATIENT
  Age: 55 Year
  Sex: Male

DRUGS (8)
  1. CLOBEX [Suspect]
     Active Substance: CLOBETASOL PROPIONATE
     Indication: PSORIASIS
     Dosage: 0.05%
     Route: 061
     Dates: start: 201408
  2. CLOBEX [Suspect]
     Active Substance: CLOBETASOL PROPIONATE
     Dosage: 0.05%
     Route: 061
     Dates: start: 201409
  3. CLOBEX [Suspect]
     Active Substance: CLOBETASOL PROPIONATE
     Dosage: 0.05%
     Route: 061
     Dates: start: 201411
  4. ATENOLOL. [Concomitant]
     Active Substance: ATENOLOL
     Indication: HYPERTENSION
     Dosage: 100MG
     Route: 048
  5. AVEENO SHOWER GEL [Concomitant]
     Indication: THERAPEUTIC SKIN CARE TOPICAL
     Route: 061
  6. CLOBEX [Suspect]
     Active Substance: CLOBETASOL PROPIONATE
     Dosage: 0.05%
     Route: 061
     Dates: start: 201410
  7. TRIAMCINOLONE 1% CREAM [Concomitant]
     Indication: PSORIASIS
     Dosage: 1%
     Route: 061
     Dates: start: 2014
  8. CETAPHIL MOISTURIZER [Concomitant]
     Indication: DRY SKIN PROPHYLAXIS
     Route: 061
     Dates: start: 20141124

REACTIONS (1)
  - Drug ineffective [Not Recovered/Not Resolved]

NARRATIVE: CASE EVENT DATE: 20141124
